FAERS Safety Report 8249051-X (Version None)
Quarter: 2012Q2

REPORT INFORMATION
  Report Type: 
  Country: None (occurrence: None)
  Receive Date: 20120402
  Receipt Date: 20120326
  Transmission Date: 20120825
  Serious: Yes (Other)
  Sender: FDA-Public Use
  Company Number: US-AMGEN-USASP2012019236

PATIENT
  Sex: Male

DRUGS (6)
  1. ACYCLOVIR [Concomitant]
  2. DIFLUCAN [Concomitant]
  3. NEURONTIN [Concomitant]
  4. BACTRIM [Concomitant]
  5. ARANESP [Suspect]
     Indication: ANAEMIA
     Dosage: UNK
     Dates: end: 20120301
  6. AMLODIPINE [Concomitant]

REACTIONS (1)
  - APLASIA PURE RED CELL [None]
